FAERS Safety Report 23335447 (Version 1)
Quarter: 2023Q4

REPORT INFORMATION
  Report Type: Report from Study
  Country: US (occurrence: US)
  Receive Date: 20231225
  Receipt Date: 20231225
  Transmission Date: 20240110
  Serious: Yes (Hospitalization, Other)
  Sender: FDA-Public Use
  Company Number: US-ASTELLAS-2023US037906

PATIENT
  Age: 84 Year
  Sex: Male

DRUGS (1)
  1. ENZALUTAMIDE [Suspect]
     Active Substance: ENZALUTAMIDE
     Indication: Product used for unknown indication
     Route: 065
     Dates: start: 20220121, end: 202312

REACTIONS (3)
  - Myocardial infarction [Unknown]
  - Blood pressure systolic increased [Unknown]
  - Arterial thrombosis [Unknown]

NARRATIVE: CASE EVENT DATE: 20231201
